FAERS Safety Report 25224732 (Version 1)
Quarter: 2025Q2

REPORT INFORMATION
  Report Type: Spontaneous
  Country: JP (occurrence: JP)
  Receive Date: 20250422
  Receipt Date: 20250422
  Transmission Date: 20250716
  Serious: Yes (Other)
  Sender: AZURITY PHARMACEUTICALS
  Company Number: JP-AZURITY PHARMACEUTICALS, INC.-AZR202504-001079

PATIENT
  Sex: Male

DRUGS (1)
  1. GABAPENTIN ENACARBIL [Suspect]
     Active Substance: GABAPENTIN ENACARBIL
     Indication: Product used for unknown indication
     Route: 048

REACTIONS (1)
  - Alcoholism [Unknown]
